FAERS Safety Report 8255534-9 (Version None)
Quarter: 2012Q2

REPORT INFORMATION
  Report Type: 
  Country: None (occurrence: None)
  Receive Date: 20120403
  Receipt Date: 20120327
  Transmission Date: 20120825
  Serious: Yes (Hospitalization, Other)
  Sender: FDA-Public Use
  Company Number: US-PFIZER INC-2012043722

PATIENT
  Sex: Male

DRUGS (3)
  1. CIPROFLOXACIN [Concomitant]
     Dosage: (SINGLE DOSE)
     Dates: start: 20120213
  2. AZITHROMYCIN [Suspect]
     Indication: PNEUMONIA
     Dosage: (SINGLE DOSE)
     Dates: start: 20120213, end: 20120213
  3. CEFTRIAXONE [Concomitant]
     Dosage: (SINGLE DOSE)
     Dates: start: 20120213

REACTIONS (1)
  - ELECTROCARDIOGRAM QT PROLONGED [None]
